FAERS Safety Report 10641353 (Version 3)
Quarter: 2015Q4

REPORT INFORMATION
  Report Type: Report from Study
  Country: DE (occurrence: DE)
  Receive Date: 20141209
  Receipt Date: 20151224
  Transmission Date: 20160304
  Serious: Yes (Death, Hospitalization, Other)
  Sender: FDA-Public Use
  Company Number: PHHY2014DE157555

PATIENT
  Age: 69 Year
  Sex: Male

DRUGS (1)
  1. GLIVEC [Suspect]
     Active Substance: IMATINIB MESYLATE
     Indication: LEUKAEMIA
     Dosage: UNK
     Route: 065
     Dates: end: 201303

REACTIONS (6)
  - Fluid retention [Unknown]
  - Leukaemia [Fatal]
  - Gastrointestinal neoplasm [Fatal]
  - Colon cancer [Unknown]
  - Concomitant disease progression [Fatal]
  - Fall [Unknown]

NARRATIVE: CASE EVENT DATE: 201401
